FAERS Safety Report 6496626-4 (Version None)
Quarter: 2009Q4

REPORT INFORMATION
  Report Type: 
  Country: None (occurrence: None)
  Receive Date: 20091214
  Receipt Date: 20091125
  Transmission Date: 20100525
  Serious: Yes (Hospitalization, Other)
  Sender: FDA-Public Use
  Company Number: CA-GENENTECH-287029

PATIENT
  Sex: Female
  Weight: 70.3 kg

DRUGS (2)
  1. XOLAIR [Suspect]
     Indication: ASTHMA
     Dosage: 225 MG, UNK
     Route: 058
     Dates: start: 20060405
  2. XOLAIR [Suspect]
     Dosage: UNK

REACTIONS (2)
  - ASTHMA [None]
  - BRONCHITIS [None]
